FAERS Safety Report 15567624 (Version 1)
Quarter: 2018Q4

REPORT INFORMATION
  Report Type: Spontaneous
  Country: US (occurrence: US)
  Receive Date: 20181030
  Receipt Date: 20181030
  Transmission Date: 20190205
  Serious: No
  Sender: FDA-Public Use
  Company Number: PHEH2018US045995

PATIENT
  Sex: Female

DRUGS (1)
  1. LANSOPRAZOLE SANDOZ [Suspect]
     Active Substance: LANSOPRAZOLE
     Indication: PRODUCT USED FOR UNKNOWN INDICATION
     Dosage: 30 MG, UNK
     Route: 065
     Dates: start: 1995

REACTIONS (3)
  - Drug ineffective [Unknown]
  - Abdominal pain upper [Unknown]
  - Dysphagia [Unknown]
